FAERS Safety Report 14957280 (Version 2)
Quarter: 2018Q2

REPORT INFORMATION
  Report Type: Report from Study
  Country: ES (occurrence: ES)
  Receive Date: 20180531
  Receipt Date: 20180620
  Transmission Date: 20180711
  Serious: Yes (Death, Other)
  Sender: FDA-Public Use
  Company Number: ES-TEVA-2018-ES-898177

PATIENT
  Age: 82 Year
  Sex: Female

DRUGS (4)
  1. GALVUS METFORMINA [Interacting]
     Active Substance: METFORMIN HYDROCHLORIDE\VILDAGLIPTIN
     Dosage: 0-1/2-1
     Route: 048
     Dates: start: 20150101, end: 20170616
  2. LOSARTAN (7157A) [Concomitant]
     Active Substance: LOSARTAN
     Dosage: 100 MG DIA
     Route: 048
     Dates: start: 20150101
  3. GALANTAMINE. [Suspect]
     Active Substance: GALANTAMINE
     Dosage: 16 MILLIGRAM DAILY; 16 MG, 0-0-1
     Route: 048
     Dates: start: 20150101, end: 20170616
  4. MEMANTINA (2299A) [Interacting]
     Active Substance: MEMANTINE HYDROCHLORIDE
     Dosage: 20 MILLIGRAM DAILY;
     Route: 048
     Dates: start: 20150101, end: 20170616

REACTIONS (2)
  - Inappropriate antidiuretic hormone secretion [Fatal]
  - Drug interaction [Unknown]

NARRATIVE: CASE EVENT DATE: 20170610
